FAERS Safety Report 19779833 (Version 2)
Quarter: 2021Q4

REPORT INFORMATION
  Report Type: Report from Study
  Country: FR (occurrence: FR)
  Receive Date: 20210902
  Receipt Date: 20211206
  Transmission Date: 20220304
  Serious: Yes (Other)
  Sender: FDA-Public Use
  Company Number: FR-BRISTOL-MYERS SQUIBB COMPANY-BMS-2021-086173

PATIENT
  Age: 74 Year
  Sex: Male

DRUGS (1)
  1. NIVOLUMAB [Suspect]
     Active Substance: NIVOLUMAB
     Indication: Renal cancer
     Dosage: 480 (UNITS NOT SPECIFIED) EVERY MONTH
     Route: 065
     Dates: start: 20201210, end: 20210520

REACTIONS (1)
  - Papilloedema [Recovered/Resolved]

NARRATIVE: CASE EVENT DATE: 20210523
